FAERS Safety Report 15544106 (Version 1)
Quarter: 2018Q4

REPORT INFORMATION
  Report Type: Report from Study
  Country: None (occurrence: BR)
  Receive Date: 20181024
  Receipt Date: 20181024
  Transmission Date: 20190205
  Serious: Yes (Other)
  Sender: FDA-Public Use
  Company Number: BR-ABBVIE-16K-020-1696998-00

PATIENT
  Age: 73 Year
  Sex: Male
  Weight: 78 kg

DRUGS (2)
  1. HUMIRA [Suspect]
     Active Substance: ADALIMUMAB
     Indication: RHEUMATOID ARTHRITIS
     Route: 058
     Dates: start: 20150605
  2. ACETYLSALICYLIC ACID [Concomitant]
     Active Substance: ASPIRIN
     Indication: HYPERTENSION

REACTIONS (6)
  - Finger deformity [Not Recovered/Not Resolved]
  - Osteoarthritis [Recovered/Resolved]
  - Gait disturbance [Unknown]
  - Product administered at inappropriate site [Unknown]
  - Atrophy [Not Recovered/Not Resolved]
  - Limb deformity [Unknown]

NARRATIVE: CASE EVENT DATE: 201607
